FAERS Safety Report 7179921-5 (Version None)
Quarter: 2010Q4

REPORT INFORMATION
  Report Type: 
  Country: None (occurrence: None)
  Receive Date: 20101221
  Receipt Date: 20101215
  Transmission Date: 20110411
  Serious: Yes (Hospitalization)
  Sender: FDA-Public Use
  Company Number: KR-PFIZER INC-2010166373

PATIENT
  Age: 48 Year
  Sex: Male

DRUGS (1)
  1. SUTENE [Suspect]
     Indication: RENAL CELL CARCINOMA
     Dosage: 50 MG, 1X/DAY
     Route: 048
     Dates: start: 20081101

REACTIONS (3)
  - ABASIA [None]
  - ARTHRALGIA [None]
  - OEDEMA PERIPHERAL [None]
